FAERS Safety Report 6826440-9 (Version None)
Quarter: 2010Q3

REPORT INFORMATION
  Report Type: 
  Country: None (occurrence: None)
  Receive Date: 20100709
  Receipt Date: 20100630
  Transmission Date: 20110219
  Serious: Yes (Hospitalization)
  Sender: FDA-Public Use
  Company Number: HR-JNJFOC-20100701022

PATIENT
  Sex: Female

DRUGS (1)
  1. RISPOLEPT CONSTA [Suspect]
     Indication: SCHIZOPHRENIA
     Route: 065

REACTIONS (1)
  - CONDITION AGGRAVATED [None]
